FAERS Safety Report 7112272-3 (Version None)
Quarter: 2010Q4

REPORT INFORMATION
  Report Type: 
  Country: None (occurrence: None)
  Receive Date: 20101119
  Receipt Date: 20100519
  Transmission Date: 20110411
  Serious: No
  Sender: FDA-Public Use
  Company Number: A0860419A

PATIENT
  Age: 46 Year
  Sex: Male

DRUGS (2)
  1. AVODART [Suspect]
     Indication: BENIGN PROSTATIC HYPERPLASIA
     Dosage: .5MG PER DAY
     Route: 048
     Dates: start: 20100301
  2. SUPPLEMENT [Concomitant]

REACTIONS (1)
  - ALOPECIA [None]
